FAERS Safety Report 7270431-3 (Version None)
Quarter: 2011Q1

REPORT INFORMATION
  Report Type: 
  Country: None (occurrence: None)
  Receive Date: 20110202
  Receipt Date: 20110125
  Transmission Date: 20110831
  Serious: Yes (Hospitalization)
  Sender: FDA-Public Use
  Company Number: LT-BRISTOL-MYERS SQUIBB COMPANY-15163843

PATIENT
  Age: 66 Year
  Sex: Male
  Weight: 86 kg

DRUGS (4)
  1. CETUXIMAB [Suspect]
     Indication: NON-SMALL CELL LUNG CANCER
     Dosage: INITIAL DOSE 400MG/M2; ON DAY1 OF 1CYCLE;RECENT INF:02DEC2009;14DEC2009
     Route: 042
     Dates: start: 20091125
  2. DEXAMETHASONE [Concomitant]
     Dates: start: 20091211, end: 20091211
  3. CARBOPLATIN [Suspect]
     Indication: NON-SMALL CELL LUNG CANCER
     Dosage: RECENT INF:25NOV09
     Route: 042
     Dates: start: 20091125
  4. GEMCITABINE [Suspect]
     Indication: NON-SMALL CELL LUNG CANCER
     Dosage: RECENT INF:02DEC09
     Route: 042
     Dates: start: 20091125

REACTIONS (1)
  - THROMBOCYTOPENIA [None]
